FAERS Safety Report 5100241-4 (Version None)
Quarter: 2006Q3

REPORT INFORMATION
  Report Type: 
  Country: None (occurrence: None)
  Receive Date: 20060908
  Receipt Date: 20060831
  Transmission Date: 20061208
  Serious: Yes (Hospitalization)
  Sender: FDA-Public Use
  Company Number: US-MERCK-0609USA00163B1

PATIENT
  Sex: Female
  Weight: 1 kg

DRUGS (2)
  1. INDOCIN [Suspect]
     Indication: ABDOMINAL PAIN
  2. INDOCIN [Suspect]
     Indication: UTERINE TENDERNESS

REACTIONS (2)
  - ACUTE RESPIRATORY DISTRESS SYNDROME [None]
  - PREMATURE BABY [None]
